FAERS Safety Report 21788002 (Version 2)
Quarter: 2024Q2

REPORT INFORMATION
  Report Type: Spontaneous
  Country: US (occurrence: US)
  Receive Date: 20221228
  Receipt Date: 20240525
  Transmission Date: 20240715
  Serious: No
  Sender: FDA-Public Use
  Company Number: US-SA-SAC20221227000347

PATIENT
  Sex: Female

DRUGS (1)
  1. DUPIXENT [Suspect]
     Active Substance: DUPILUMAB
     Indication: Dermatitis atopic
     Dosage: 300 MG, QOW
     Route: 058

REACTIONS (1)
  - Dry mouth [Not Recovered/Not Resolved]
